FAERS Safety Report 8384944-4 (Version None)
Quarter: 2012Q2

REPORT INFORMATION
  Report Type: 
  Country: None (occurrence: None)
  Receive Date: 20120524
  Receipt Date: 20120522
  Transmission Date: 20120825
  Serious: Yes (Hospitalization)
  Sender: FDA-Public Use
  Company Number: US-GILEAD-2012-0052772

PATIENT
  Sex: Male

DRUGS (6)
  1. LETAIRIS [Suspect]
     Indication: PULMONARY ARTERIAL HYPERTENSION
     Dosage: 10 MG, UNK
     Route: 048
     Dates: start: 20110916
  2. BROVANA [Concomitant]
  3. LETAIRIS [Suspect]
     Dosage: 7.5 UNK, UNK
     Route: 048
     Dates: start: 20120411
  4. SPIRIVA [Concomitant]
  5. PULMICORT [Concomitant]
  6. ALBUTEROL SULFATE [Concomitant]

REACTIONS (6)
  - CARDIAC DISORDER [None]
  - HYPOTENSION [None]
  - DIABETES MELLITUS [None]
  - URINARY TRACT INFECTION [None]
  - MUSCULOSKELETAL DISORDER [None]
  - BLOOD PRESSURE INCREASED [None]
